FAERS Safety Report 21104770 (Version 1)
Quarter: 2022Q3

REPORT INFORMATION
  Report Type: Spontaneous
  Country: US (occurrence: None)
  Receive Date: 20220719
  Receipt Date: 20220719
  Transmission Date: 20221027
  Serious: Yes (Other)
  Sender: FDA-Public Use
  Company Number: None

PATIENT
  Age: 40 Year
  Sex: Female
  Weight: 45.4 kg

DRUGS (2)
  1. ADAKVEO [Suspect]
     Active Substance: CRIZANLIZUMAB-TMCA
     Indication: Sickle cell disease
     Dosage: OTHER FREQUENCY : MONTHLY;?
     Route: 042
     Dates: start: 20220601, end: 20220601
  2. HYDROMORPHONE [Concomitant]
     Active Substance: HYDROMORPHONE
     Dates: start: 20220601, end: 20220601

REACTIONS (4)
  - Pain [None]
  - Haemoglobin decreased [None]
  - Haematocrit decreased [None]
  - Infusion related reaction [None]

NARRATIVE: CASE EVENT DATE: 20220601
